FAERS Safety Report 23803918 (Version 2)
Quarter: 2024Q2

REPORT INFORMATION
  Report Type: Spontaneous
  Country: US (occurrence: US)
  Receive Date: 20240501
  Receipt Date: 20240503
  Transmission Date: 20240715
  Serious: Yes (Hospitalization, Other)
  Sender: FDA-Public Use
  Company Number: US-MLMSERVICE-20240419-PI033374-00145-1

PATIENT
  Age: 40 Year
  Sex: Male

DRUGS (1)
  1. FENTANYL CITRATE [Suspect]
     Active Substance: FENTANYL CITRATE
     Dosage: UNK
     Route: 042

REACTIONS (4)
  - Drug abuse [Unknown]
  - Gastrointestinal amyloidosis [Unknown]
  - Secondary amyloidosis [Unknown]
  - Renal amyloidosis [Unknown]
